FAERS Safety Report 4721929-0 (Version None)
Quarter: 2005Q3

REPORT INFORMATION
  Report Type: 
  Country: None (occurrence: None)
  Receive Date: 20050720
  Receipt Date: 20050708
  Transmission Date: 20060218
  Serious: Yes (Death)
  Sender: FDA-Public Use
  Company Number: GBWYE207517NOV04

PATIENT
  Age: 45 Year
  Sex: Female

DRUGS (2)
  1. GEMTUZUMAB OZOGAMICIN (GEMTUZUMAB OZOGAMICIN, INJECTION) [Suspect]
     Indication: ACUTE MYELOID LEUKAEMIA
  2. CYTARABINE [Concomitant]

REACTIONS (9)
  - ABDOMINAL PAIN [None]
  - CARDIO-RESPIRATORY ARREST [None]
  - DEEP VEIN THROMBOSIS [None]
  - FALL [None]
  - HEPATIC HAEMORRHAGE [None]
  - HEPATIC RUPTURE [None]
  - NAUSEA [None]
  - SHOULDER PAIN [None]
  - VOMITING [None]
